FAERS Safety Report 12269830 (Version 1)
Quarter: 2016Q2

REPORT INFORMATION
  Report Type: Spontaneous
  Country: DE (occurrence: DE)
  Receive Date: 20160415
  Receipt Date: 20160415
  Transmission Date: 20160815
  Serious: Yes (Hospitalization, Disabling)
  Sender: FDA-Public Use
  Company Number: GXKR2016DE001853

PATIENT

DRUGS (1)
  1. YARA HEXAL [Suspect]
     Active Substance: DROSPIRENONE\ETHINYL ESTRADIOL
     Indication: CONTRACEPTION
     Dosage: UNK MG, UNK
     Route: 048
     Dates: start: 2014

REACTIONS (5)
  - Brain oedema [Unknown]
  - Cerebral haemorrhage [Unknown]
  - Hemiplegia [Unknown]
  - Cerebrovascular accident [Unknown]
  - Intracranial venous sinus thrombosis [Recovered/Resolved with Sequelae]
